FAERS Safety Report 18162308 (Version 1)
Quarter: 2020Q3

REPORT INFORMATION
  Report Type: Spontaneous
  Country: CA (occurrence: CA)
  Receive Date: 20200818
  Receipt Date: 20200818
  Transmission Date: 20201103
  Serious: Yes (Death, Life-Threatening, Hospitalization)
  Sender: FDA-Public Use
  Company Number: CA-ACCORD-195413

PATIENT
  Age: 54 Year
  Sex: Male
  Weight: 56 kg

DRUGS (15)
  1. PANTOPRAZOLE [Concomitant]
     Active Substance: PANTOPRAZOLE
  2. ENOXAPARIN [Concomitant]
     Active Substance: ENOXAPARIN
  3. HYDROMORPHONE/HYDROMORPHONE HYDROCHLORIDE [Concomitant]
     Active Substance: HYDROMORPHONE
  4. CITALOPRAM [Concomitant]
     Active Substance: CITALOPRAM HYDROBROMIDE
  5. TYLENOL [Concomitant]
     Active Substance: ACETAMINOPHEN
  6. FOLINIC ACID [Concomitant]
     Active Substance: LEUCOVORIN
  7. IRINOTECAN [Concomitant]
     Active Substance: IRINOTECAN
  8. FLUOROURACIL. [Suspect]
     Active Substance: FLUOROURACIL
     Indication: PANCREATIC CARCINOMA METASTATIC
     Dosage: ONCE
     Route: 040
  9. FLUOROURACIL. [Suspect]
     Active Substance: FLUOROURACIL
     Indication: PANCREATIC CARCINOMA METASTATIC
     Dosage: ONCE
     Route: 041
  10. ZOPICLONE [Concomitant]
     Active Substance: ZOPICLONE
  11. VENTOLIN [Concomitant]
     Active Substance: ALBUTEROL SULFATE
  12. OXALIPLATIN. [Concomitant]
     Active Substance: OXALIPLATIN
  13. HYDROMORPHONE/HYDROMORPHONE HYDROCHLORIDE [Concomitant]
     Active Substance: HYDROMORPHONE
  14. FLOVENT [Concomitant]
     Active Substance: FLUTICASONE PROPIONATE
  15. EMEND [Concomitant]
     Active Substance: APREPITANT

REACTIONS (4)
  - Febrile neutropenia [Fatal]
  - Sepsis [Fatal]
  - Enterobacter infection [Fatal]
  - Pneumonia streptococcal [Fatal]
